FAERS Safety Report 15627150 (Version 1)
Quarter: 2018Q4

REPORT INFORMATION
  Report Type: Spontaneous
  Country: FR (occurrence: FR)
  Receive Date: 20181116
  Receipt Date: 20181116
  Transmission Date: 20190205
  Serious: Yes (Hospitalization)
  Sender: FDA-Public Use
  Company Number: FR-PFM-2018-13519

PATIENT

DRUGS (4)
  1. RIVAROXABAN [Suspect]
     Active Substance: RIVAROXABAN
     Indication: INTENTIONAL OVERDOSE
  2. PROPRANOLOL [Suspect]
     Active Substance: PROPRANOLOL HYDROCHLORIDE
     Indication: INTENTIONAL OVERDOSE
     Dosage: 1.2 G, SINGLE
     Route: 048
  3. AMIODARONE [Suspect]
     Active Substance: AMIODARONE
     Indication: INTENTIONAL OVERDOSE
     Dosage: 6 G, SINGLE
     Route: 048
  4. RIVAROXABAN [Suspect]
     Active Substance: RIVAROXABAN
     Indication: ANTICOAGULANT THERAPY
     Dosage: 280 MG, SINGLE
     Route: 048

REACTIONS (6)
  - Intentional overdose [Unknown]
  - Product use issue [Unknown]
  - Toxicity to various agents [Recovered/Resolved]
  - Hypovolaemic shock [Unknown]
  - Poisoning deliberate [Recovered/Resolved]
  - Off label use [Unknown]
